FAERS Safety Report 24887048 (Version 1)
Quarter: 2025Q1

REPORT INFORMATION
  Report Type: Spontaneous
  Country: CZ (occurrence: CZ)
  Receive Date: 20250127
  Receipt Date: 20250127
  Transmission Date: 20250409
  Serious: Yes (Death, Other)
  Sender: ARGENX BVBA
  Company Number: CZ-Medison-000925

PATIENT

DRUGS (1)
  1. VYVGART [Suspect]
     Active Substance: EFGARTIGIMOD ALFA-FCAB
     Indication: Myasthenia gravis
     Dosage: 20 MILLIGRAM PER MILLILITRE, 1/WEEK;DOSAGE: IV/4IV INFUSION/4WEEKS
     Route: 042
     Dates: start: 20240802, end: 20241210

REACTIONS (4)
  - Multiple organ dysfunction syndrome [Fatal]
  - Disease complication [Fatal]
  - COVID-19 [Fatal]
  - Fungal infection [Fatal]

NARRATIVE: CASE EVENT DATE: 20241126
